FAERS Safety Report 24609523 (Version 1)
Quarter: 2024Q4

REPORT INFORMATION
  Report Type: Spontaneous
  Country: US (occurrence: None)
  Receive Date: 20241112
  Receipt Date: 20241112
  Transmission Date: 20250115
  Serious: Yes (unspecified)
  Sender: Public
  Company Number: None

PATIENT
  Age: 49 Year
  Sex: Female

DRUGS (1)
  1. ALECENSA [Suspect]
     Active Substance: ALECTINIB HYDROCHLORIDE
     Dates: start: 20231208, end: 20240212

REACTIONS (2)
  - Intestinal perforation [None]
  - Therapy cessation [None]

NARRATIVE: CASE EVENT DATE: 20241112
